FAERS Safety Report 25493356 (Version 1)
Quarter: 2025Q2

REPORT INFORMATION
  Report Type: Spontaneous
  Country: US (occurrence: US)
  Receive Date: 20250630
  Receipt Date: 20250630
  Transmission Date: 20250716
  Serious: No
  Sender: ITALFARMACO SPA
  Company Number: US-ITALFARMACO SPA-2179616

PATIENT
  Age: 12 Year
  Sex: Male

DRUGS (2)
  1. DUVYZAT [Suspect]
     Active Substance: GIVINOSTAT
  2. AGAMREE [Concomitant]
     Active Substance: VAMOROLONE

REACTIONS (3)
  - Gait disturbance [Unknown]
  - Posture abnormal [Unknown]
  - Pain in extremity [Unknown]
